FAERS Safety Report 9546733 (Version 2)
Quarter: 2013Q4

REPORT INFORMATION
  Report Type: Spontaneous
  Country: US (occurrence: US)
  Receive Date: 20130924
  Receipt Date: 20131218
  Transmission Date: 20140711
  Serious: No
  Sender: FDA-Public Use
  Company Number: US-BIOGENIDEC-2013BI089415

PATIENT
  Age: 52 Year
  Sex: Female

DRUGS (4)
  1. TYSABRI [Suspect]
     Indication: MULTIPLE SCLEROSIS
     Route: 042
     Dates: start: 20091106, end: 20101018
  2. TYSABRI [Suspect]
     Indication: MULTIPLE SCLEROSIS
     Route: 042
     Dates: start: 20130807
  3. COPAXONE [Concomitant]
     Indication: MULTIPLE SCLEROSIS
  4. REBIF [Concomitant]
     Indication: MULTIPLE SCLEROSIS

REACTIONS (8)
  - Gait disturbance [Not Recovered/Not Resolved]
  - Pain in extremity [Not Recovered/Not Resolved]
  - Local swelling [Not Recovered/Not Resolved]
  - Skin warm [Not Recovered/Not Resolved]
  - Middle insomnia [Not Recovered/Not Resolved]
  - Drug dependence [Unknown]
  - Dizziness [Unknown]
  - Fatigue [Not Recovered/Not Resolved]
